FAERS Safety Report 18872904 (Version 1)
Quarter: 2021Q1

REPORT INFORMATION
  Report Type: Spontaneous
  Country: US (occurrence: US)
  Receive Date: 20210210
  Receipt Date: 20210210
  Transmission Date: 20210420
  Serious: Yes (Other)
  Sender: FDA-Public Use
  Company Number: US-SA-2021SA042279

PATIENT
  Sex: Female

DRUGS (1)
  1. APIDRA SOLOSTAR [Suspect]
     Active Substance: INSULIN GLULISINE
     Indication: TYPE 1 DIABETES MELLITUS
     Dosage: 100 UNITS TOTAL A DAY,4?6 TIMES A DAY
     Route: 065

REACTIONS (4)
  - Blood glucose fluctuation [Unknown]
  - Neoplasm malignant [Unknown]
  - Visual impairment [Unknown]
  - Incorrect dose administered [Unknown]
